FAERS Safety Report 9908529 (Version 2)
Quarter: 2014Q1

REPORT INFORMATION
  Report Type: Spontaneous
  Country: IT (occurrence: IT)
  Receive Date: 20140219
  Receipt Date: 20140219
  Transmission Date: 20141002
  Serious: Yes (Other)
  Sender: FDA-Public Use
  Company Number: IT-BAYER-2014-017533

PATIENT
  Age: 77 Year
  Sex: Female

DRUGS (5)
  1. ACETYLSALICYLIC ACID({=100 MG) [Suspect]
     Indication: CARDIAC FIBRILLATION
     Dosage: DAILY DOSE 100 MG
     Route: 048
     Dates: start: 20131210
  2. PROPAFENONE [Suspect]
     Indication: PALPITATIONS
     Dosage: 300 MG, PRN
     Route: 048
     Dates: start: 20131210
  3. IRBESARTAN [Suspect]
     Indication: CARDIAC FIBRILLATION
     Dosage: DAILY DOSE 150 MG
     Route: 048
     Dates: start: 20131210
  4. IRBESARTAN [Suspect]
     Indication: CARDIAC FIBRILLATION
     Dosage: UNK
     Route: 048
  5. LOBIVON [Concomitant]
     Indication: HYPERTENSION
     Dosage: DAILY DOSE 2.5 MG
     Route: 048

REACTIONS (3)
  - Atrial fibrillation [Recovered/Resolved]
  - Blood pressure increased [Recovered/Resolved]
  - Drug ineffective [Recovered/Resolved]
